FAERS Safety Report 9901719 (Version 2)
Quarter: 2014Q1

REPORT INFORMATION
  Report Type: Spontaneous
  Country: DE (occurrence: DE)
  Receive Date: 20140217
  Receipt Date: 20140217
  Transmission Date: 20141002
  Serious: Yes (Other)
  Sender: FDA-Public Use
  Company Number: PHHY2014DE000638

PATIENT
  Sex: Male

DRUGS (2)
  1. GLIVEC [Suspect]
     Indication: GASTROINTESTINAL STROMAL TUMOUR
     Dosage: 400 MG, QD
     Dates: start: 200607
  2. CHININSULFAT HAENSELER [Interacting]
     Indication: MUSCLE SPASMS
     Dosage: UNK UKN, UNK

REACTIONS (12)
  - Road traffic accident [Recovered/Resolved]
  - Tibia fracture [Recovered/Resolved]
  - Visual impairment [Not Recovered/Not Resolved]
  - Drug interaction [Unknown]
  - Haemoglobin abnormal [Unknown]
  - Oral pain [Not Recovered/Not Resolved]
  - Muscle spasms [Recovering/Resolving]
  - Malaise [Not Recovered/Not Resolved]
  - Asthenia [Not Recovered/Not Resolved]
  - Blood pressure abnormal [Unknown]
  - Nipple pain [Not Recovered/Not Resolved]
  - Diarrhoea [Not Recovered/Not Resolved]
